FAERS Safety Report 20264648 (Version 2)
Quarter: 2022Q1

REPORT INFORMATION
  Report Type: Spontaneous
  Country: IL (occurrence: IL)
  Receive Date: 20211231
  Receipt Date: 20220118
  Transmission Date: 20220423
  Serious: Yes (Other)
  Sender: FDA-Public Use
  Company Number: IL-AMERICAN REGENT INC-2021003366

PATIENT
  Age: 70 Year
  Sex: Female

DRUGS (1)
  1. FERINJECT [Suspect]
     Active Substance: FERRIC CARBOXYMALTOSE
     Indication: Product used for unknown indication
     Dosage: 1 GRAM
     Route: 042

REACTIONS (3)
  - Hypokalaemia [Recovered/Resolved]
  - Serum ferritin increased [Recovered/Resolved]
  - Off label use [Unknown]
